FAERS Safety Report 9290007 (Version 12)
Quarter: 2014Q2

REPORT INFORMATION
  Report Type: Spontaneous
  Country: DK (occurrence: DK)
  Receive Date: 20130515
  Receipt Date: 20140630
  Transmission Date: 20141212
  Serious: Yes (Hospitalization, Disabling, Other)
  Sender: FDA-Public Use
  Company Number: DK-JNJFOC-20120809925

PATIENT
  Age: 20 Year
  Sex: Male
  Weight: 72 kg

DRUGS (5)
  1. REMICADE [Suspect]
     Indication: COLITIS ULCERATIVE
     Dosage: FIRST INFUSION
     Route: 042
     Dates: start: 20120615
  2. REMICADE [Suspect]
     Indication: COLITIS ULCERATIVE
     Dosage: SECOND INFUSION
     Route: 042
     Dates: start: 20120629, end: 20120629
  3. REMICADE [Suspect]
     Indication: IRRITABLE BOWEL SYNDROME
     Dosage: FIRST INFUSION
     Route: 042
     Dates: start: 20120615
  4. REMICADE [Suspect]
     Indication: IRRITABLE BOWEL SYNDROME
     Dosage: SECOND INFUSION
     Route: 042
     Dates: start: 20120629, end: 20120629
  5. IMUREL [Concomitant]
     Indication: COLITIS ULCERATIVE
     Route: 065
     Dates: start: 20120626, end: 20120903

REACTIONS (6)
  - Optic neuritis [Not Recovered/Not Resolved]
  - Colitis [Unknown]
  - Colectomy [Unknown]
  - Eye swelling [Unknown]
  - Eye pain [Not Recovered/Not Resolved]
  - Disturbance in attention [Unknown]
